FAERS Safety Report 4360700-9 (Version None)
Quarter: 2004Q2

REPORT INFORMATION
  Report Type: 
  Country: None (occurrence: None)
  Receive Date: 20040514
  Receipt Date: 20010816
  Transmission Date: 20050107
  Serious: Yes (Death)
  Sender: FDA-Public Use
  Company Number: 200113567GDS

PATIENT
  Age: 48 Year
  Sex: Male

DRUGS (6)
  1. AVELOX [Suspect]
     Indication: BRONCHOPNEUMONIA
     Dosage: 400 MG, TOTAL DAILY, ORAL
     Route: 048
     Dates: start: 20010525, end: 20010530
  2. GLUCOBAY [Concomitant]
  3. GLUCOPHAGE [Concomitant]
  4. AMARYL [Concomitant]
  5. LASIX [Concomitant]
  6. ENZYMPLEX [Concomitant]

REACTIONS (3)
  - GENERALISED OEDEMA [None]
  - HYPOGLYCAEMIA [None]
  - PULMONARY OEDEMA [None]
